FAERS Safety Report 10931782 (Version 2)
Quarter: 2015Q2

REPORT INFORMATION
  Report Type: Report from Study
  Country: US (occurrence: US)
  Receive Date: 20150319
  Receipt Date: 20150413
  Transmission Date: 20150821
  Serious: Yes (Other)
  Sender: FDA-Public Use
  Company Number: PHEH2015US004697

PATIENT
  Sex: Female

DRUGS (1)
  1. GILENYA [Suspect]
     Active Substance: FINGOLIMOD HYDROCHLORIDE
     Indication: MULTIPLE SCLEROSIS
     Dosage: 0.5 MG, QD
     Route: 048
     Dates: start: 20110521

REACTIONS (16)
  - Tearfulness [Unknown]
  - Blindness unilateral [Not Recovered/Not Resolved]
  - Basophil count increased [Unknown]
  - Haemoglobin decreased [Unknown]
  - Depression [Not Recovered/Not Resolved]
  - Sensory disturbance [Unknown]
  - Alanine aminotransferase decreased [Unknown]
  - Vision blurred [Unknown]
  - Optic neuritis [Recovering/Resolving]
  - Pupils unequal [Unknown]
  - Optic atrophy [Unknown]
  - Fatigue [Unknown]
  - Eye pain [Recovered/Resolved]
  - Red cell distribution width increased [Unknown]
  - Multiple sclerosis relapse [Not Recovered/Not Resolved]
  - Anxiety [Not Recovered/Not Resolved]
